FAERS Safety Report 18108039 (Version 1)
Quarter: 2020Q3

REPORT INFORMATION
  Report Type: Spontaneous
  Country: US (occurrence: US)
  Receive Date: 20200803
  Receipt Date: 20200803
  Transmission Date: 20201103
  Serious: Yes (Disabling, Other)
  Sender: FDA-Public Use
  Company Number: US-PURDUE-USA-2020-0159297

PATIENT
  Sex: Male

DRUGS (7)
  1. HEROIN [Suspect]
     Active Substance: DIAMORPHINE
     Indication: INJURY
     Dosage: UNK
     Route: 065
     Dates: start: 2003
  2. MORPHINE SULFATE EXTENDED?RELEASE TABLETS (RHODES 74?769, 74?862) [Suspect]
     Active Substance: MORPHINE SULFATE
     Indication: INJURY
     Dosage: UNK
     Route: 048
     Dates: start: 2003
  3. OXYCODONE HCL TABLETS (RHODES 91?490) [Suspect]
     Active Substance: OXYCODONE HYDROCHLORIDE
     Indication: INJURY
     Dosage: UNK
     Route: 048
     Dates: start: 2003
  4. BUPRENORPHINE TRANSDERMAL PATCH (SIMILAR TO NDA 21?306) [Suspect]
     Active Substance: BUPRENORPHINE
     Indication: INJURY
     Dosage: UNK
     Route: 062
     Dates: start: 2003
  5. OXYCODONE HCL CR TABLETS (SIMILAR TO NDA 22?272) [Suspect]
     Active Substance: OXYCODONE HYDROCHLORIDE
     Indication: INJURY
     Dosage: UNK
     Route: 048
     Dates: start: 2003
  6. OXYCODONE/ ACETAMINOPHEN TABLETS [Suspect]
     Active Substance: ACETAMINOPHEN\OXYCODONE HYDROCHLORIDE
     Indication: INJURY
     Dosage: UNK
     Route: 048
     Dates: start: 2003
  7. ROXICODONE [Suspect]
     Active Substance: OXYCODONE HYDROCHLORIDE
     Indication: INJURY
     Dosage: UNK
     Route: 065
     Dates: start: 2003

REACTIONS (8)
  - Drug abuse [Unknown]
  - Overdose [Unknown]
  - Learning disability [Unknown]
  - Developmental delay [Unknown]
  - Imprisonment [Unknown]
  - General physical health deterioration [Unknown]
  - Brain injury [Unknown]
  - Depression [Unknown]
